FAERS Safety Report 23596367 (Version 2)
Quarter: 2024Q2

REPORT INFORMATION
  Report Type: Spontaneous
  Country: US (occurrence: US)
  Receive Date: 20240305
  Receipt Date: 20240423
  Transmission Date: 20240716
  Serious: Yes (Other)
  Sender: FDA-Public Use
  Company Number: US-SANOFI-01959744

PATIENT
  Age: 81 Year
  Sex: Male

DRUGS (1)
  1. TOUJEO [Suspect]
     Active Substance: INSULIN GLARGINE
     Indication: Type 2 diabetes mellitus
     Dosage: 19 IU, QD
     Route: 058

REACTIONS (3)
  - Diabetes mellitus inadequate control [Unknown]
  - Device operational issue [Unknown]
  - Weight decreased [Unknown]
